FAERS Safety Report 5698421-2 (Version None)
Quarter: 2008Q2

REPORT INFORMATION
  Report Type: 
  Country: None (occurrence: None)
  Receive Date: 20080408
  Receipt Date: 20060619
  Transmission Date: 20081010
  Serious: Yes (Hospitalization, Other)
  Sender: FDA-Public Use
  Company Number: US-BAYER-US-2005-017808

PATIENT
  Age: 63 Year
  Sex: Female
  Weight: 82 kg

DRUGS (15)
  1. CLIMARA [Suspect]
     Indication: HORMONE REPLACEMENT THERAPY
     Route: 062
     Dates: start: 19990101, end: 20000101
  2. PREMPRO [Suspect]
     Indication: HOT FLUSH
     Dates: start: 19980101, end: 19990701
  3. PREMARIN [Suspect]
     Indication: HOT FLUSH
     Dates: start: 19600101, end: 20010101
  4. PREMARIN [Suspect]
     Dates: start: 19990101
  5. PROVERA [Suspect]
     Indication: HOT FLUSH
     Dates: start: 19990101, end: 20010101
  6. PROVERA [Suspect]
     Dates: start: 19600101, end: 19980101
  7. MPA [Suspect]
     Indication: HOT FLUSH
     Dates: start: 19990901, end: 20000901
  8. ACTIVELLA [Suspect]
     Indication: HOT FLUSH
     Dates: start: 20020101, end: 20030701
  9. NIASPAN [Concomitant]
     Indication: BLOOD CHOLESTEROL INCREASED
     Dosage: UNIT DOSE: 1000 MG
     Route: 048
     Dates: start: 19950101
  10. LIPITOR [Concomitant]
     Indication: BLOOD CHOLESTEROL INCREASED
     Dosage: UNIT DOSE: 40 MG
     Route: 048
     Dates: start: 19950101
  11. TOPROL-XL [Concomitant]
     Indication: CARDIAC DISORDER
     Dosage: UNIT DOSE: 50 MG
     Route: 048
     Dates: start: 19950101
  12. ZETIA [Concomitant]
     Indication: BLOOD CHOLESTEROL INCREASED
     Dosage: UNIT DOSE: 10 MG
     Route: 048
     Dates: start: 19950101
  13. ASPIRIN [Concomitant]
     Indication: CARDIOVASCULAR EVENT PROPHYLAXIS
     Dosage: UNIT DOSE: 325 MG
     Route: 048
     Dates: start: 19950101
  14. SYNTHROID [Concomitant]
     Indication: HYPOTHYROIDISM
     Route: 048
     Dates: start: 19900101
  15. ZOLOFT [Concomitant]
     Indication: DEPRESSION
     Dates: start: 19900101

REACTIONS (5)
  - BREAST CANCER FEMALE [None]
  - BREAST INFECTION [None]
  - DEFORMITY [None]
  - MARITAL PROBLEM [None]
  - PAIN [None]
